FAERS Safety Report 8613112-3 (Version None)
Quarter: 2012Q3

REPORT INFORMATION
  Report Type: 
  Country: None (occurrence: None)
  Receive Date: 20120822
  Receipt Date: 20120727
  Transmission Date: 20120928
  Serious: Yes (Hospitalization, Disabling, Other)
  Sender: FDA-Public Use
  Company Number: US-009507513-1110USA01562

PATIENT

DRUGS (5)
  1. VITAMIN D [Concomitant]
     Indication: OSTEOPENIA
  2. FOSAMAX [Suspect]
     Indication: OSTEOPOROSIS
  3. FOSAMAX [Suspect]
     Indication: BONE LOSS
     Dosage: 70 MG, QW
     Route: 048
     Dates: start: 20000101
  4. SYNTHROID [Concomitant]
     Indication: HYPOTHYROIDISM
  5. CALCIUM (UNSPECIFIED) [Concomitant]
     Indication: OSTEOPENIA

REACTIONS (32)
  - ANXIETY [None]
  - FOOT DEFORMITY [None]
  - SEASONAL ALLERGY [None]
  - MUSCULOSKELETAL PAIN [None]
  - ARTHRALGIA [None]
  - GASTROOESOPHAGEAL REFLUX DISEASE [None]
  - NAUSEA [None]
  - FEMUR FRACTURE [None]
  - FALL [None]
  - RESTLESS LEGS SYNDROME [None]
  - INTERVERTEBRAL DISC DEGENERATION [None]
  - ULCER [None]
  - IMPAIRED HEALING [None]
  - MUSCULOSKELETAL DISORDER [None]
  - TENDONITIS [None]
  - JOINT INJURY [None]
  - DEPRESSION [None]
  - EXOSTOSIS [None]
  - FRACTURE NONUNION [None]
  - HYPERCHOLESTEROLAEMIA [None]
  - DRUG ADMINISTRATION ERROR [None]
  - FOOT FRACTURE [None]
  - BURSITIS [None]
  - TOOTH ABSCESS [None]
  - PAIN IN EXTREMITY [None]
  - TOOTH DISORDER [None]
  - OSTEOPENIA [None]
  - MUSCLE SPASMS [None]
  - VITAMIN D DEFICIENCY [None]
  - HYPERTENSION [None]
  - ADVERSE EVENT [None]
  - RHEUMATOID ARTHRITIS [None]
